FAERS Safety Report 8872159 (Version 2)
Quarter: 2013Q3

REPORT INFORMATION
  Report Type: Spontaneous
  Country: US (occurrence: US)
  Receive Date: 20121026
  Receipt Date: 20130930
  Transmission Date: 20140515
  Serious: No
  Sender: FDA-Public Use
  Company Number: US-AMGEN-USASP2012051951

PATIENT
  Age: 60 Year
  Sex: Male

DRUGS (2)
  1. ENBREL [Suspect]
     Indication: RHEUMATOID ARTHRITIS
     Dosage: 50 MG, QWK
     Dates: start: 201209, end: 201211
  2. METHOTREXATE [Concomitant]
     Dosage: 20 MG, QWK

REACTIONS (3)
  - Ocular hyperaemia [Not Recovered/Not Resolved]
  - Hordeolum [Not Recovered/Not Resolved]
  - Stomatitis [Not Recovered/Not Resolved]
